FAERS Safety Report 6511360-X (Version None)
Quarter: 2009Q4

REPORT INFORMATION
  Report Type: 
  Country: None (occurrence: None)
  Receive Date: 20091222
  Receipt Date: 20090305
  Transmission Date: 20100525
  Serious: No
  Sender: FDA-Public Use
  Company Number: US-ASTRAZENECA-2009UW05865

PATIENT
  Sex: Female

DRUGS (2)
  1. CRESTOR [Suspect]
     Dosage: UNKNOWN
     Route: 048
  2. PROCARDIA XL [Suspect]
     Dosage: UNKNOWN
     Route: 065

REACTIONS (2)
  - MUSCULAR WEAKNESS [None]
  - OEDEMA PERIPHERAL [None]
